FAERS Safety Report 19932342 (Version 1)
Quarter: 2021Q4

REPORT INFORMATION
  Report Type: Spontaneous
  Country: US (occurrence: US)
  Receive Date: 20211007
  Receipt Date: 20211007
  Transmission Date: 20220304
  Serious: Yes (Death)
  Sender: FDA-Public Use
  Company Number: None

PATIENT
  Age: 71 Year
  Sex: Male

DRUGS (2)
  1. SILDENAFIL [Suspect]
     Active Substance: SILDENAFIL
     Indication: Erectile dysfunction
     Dosage: ?          OTHER FREQUENCY:THREE TIMES DAILY;
     Route: 048
     Dates: start: 20210812
  2. AMBRISENTAN [Concomitant]
     Active Substance: AMBRISENTAN
     Dates: start: 20210723, end: 20211001

REACTIONS (1)
  - Death [None]

NARRATIVE: CASE EVENT DATE: 20211001
